FAERS Safety Report 5557860-0 (Version None)
Quarter: 2007Q4

REPORT INFORMATION
  Report Type: 
  Country: None (occurrence: None)
  Receive Date: 20071130
  Receipt Date: 20070827
  Transmission Date: 20080405
  Serious: No
  Sender: FDA-Public Use
  Company Number: US200708006192

PATIENT
  Age: 68 Year
  Sex: Female

DRUGS (1)
  1. BYETTA [Suspect]
     Dosage: 5 UG, SUBCUTANEOUS, 20 UG, OTHER, SUBCUTANEOUS
     Route: 058

REACTIONS (4)
  - ACCIDENTAL OVERDOSE [None]
  - HYPERHIDROSIS [None]
  - INCORRECT DOSE ADMINISTERED [None]
  - NAUSEA [None]
